FAERS Safety Report 6176245-X (Version None)
Quarter: 2009Q2

REPORT INFORMATION
  Report Type: 
  Country: None (occurrence: None)
  Receive Date: 20090501
  Receipt Date: 20090422
  Transmission Date: 20091009
  Serious: Yes (Death)
  Sender: FDA-Public Use
  Company Number: B0553264A

PATIENT
  Sex: Male
  Weight: 80 kg

DRUGS (7)
  1. AVANDAMET [Suspect]
     Indication: DIABETES MELLITUS
     Route: 065
     Dates: start: 20060718
  2. GLICLAZIDE [Concomitant]
     Route: 065
     Dates: start: 20070713
  3. CORACTEN SR [Concomitant]
     Indication: BLOOD PRESSURE
     Route: 065
     Dates: start: 20010510
  4. ROSUVASTATIN CALCIUM [Concomitant]
     Indication: PROPHYLAXIS
     Route: 065
     Dates: start: 20030626
  5. RANITIDINE [Concomitant]
     Route: 065
     Dates: start: 20061221
  6. DORZOLAMIDE HYDROCHLORIDE [Concomitant]
     Indication: GLAUCOMA
     Route: 065
     Dates: start: 20011219
  7. TIMOLOL MALEATE [Concomitant]
     Route: 065

REACTIONS (17)
  - ACUTE MYOCARDIAL INFARCTION [None]
  - ARTERIOSCLEROSIS CORONARY ARTERY [None]
  - ASPARTATE AMINOTRANSFERASE INCREASED [None]
  - BLOOD CREATINE PHOSPHOKINASE INCREASED [None]
  - BLOOD CREATINE PHOSPHOKINASE MB INCREASED [None]
  - BLOOD GLUCOSE INCREASED [None]
  - BLOOD LACTATE DEHYDROGENASE INCREASED [None]
  - CHEST PAIN [None]
  - CIRCULATORY COLLAPSE [None]
  - DYSPNOEA [None]
  - GLYCOSYLATED HAEMOGLOBIN INCREASED [None]
  - HAEMATOCRIT DECREASED [None]
  - LEFT VENTRICULAR HYPERTROPHY [None]
  - MYOCARDIAL INFARCTION [None]
  - NEUTROPHIL COUNT INCREASED [None]
  - RED BLOOD CELL COUNT DECREASED [None]
  - WHITE BLOOD CELL COUNT INCREASED [None]
